FAERS Safety Report 12109867 (Version 1)
Quarter: 2016Q1

REPORT INFORMATION
  Report Type: Spontaneous
  Country: US (occurrence: None)
  Receive Date: 20160222
  Receipt Date: 20160222
  Transmission Date: 20160526
  Serious: Yes (Hospitalization)
  Sender: FDA-Public Use
  Company Number: None

PATIENT
  Age: 78 Year
  Sex: Female

DRUGS (15)
  1. METOLAZONE. [Concomitant]
     Active Substance: METOLAZONE
  2. POTASSIUM CHLORIDE. [Concomitant]
     Active Substance: POTASSIUM CHLORIDE
  3. WARFARIN [Suspect]
     Active Substance: WARFARIN
     Indication: ATRIAL FIBRILLATION
     Route: 048
     Dates: end: 20151125
  4. PIPERACILLIN/TAZOBACTAM [Concomitant]
     Active Substance: PIPERACILLIN SODIUM\TAZOBACTAM SODIUM
  5. ACETAMINOPHEN. [Concomitant]
     Active Substance: ACETAMINOPHEN
  6. MAGNESIUM OXIDE. [Concomitant]
     Active Substance: MAGNESIUM OXIDE
  7. METOPROLOL. [Concomitant]
     Active Substance: METOPROLOL
  8. NYSTATIN TOPICAL [Concomitant]
  9. VANCOMYCIN [Concomitant]
     Active Substance: VANCOMYCIN
  10. FLUOXETINE [Concomitant]
     Active Substance: FLUOXETINE HYDROCHLORIDE
  11. NEPHROCAPS [Concomitant]
     Active Substance: ASCORBIC ACID\BIOTIN\CYANOCOBALAMIN\FOLIC ACID\NIACIN\PANTOTHENIC ACID\PYRIDOXINE\RIBOFLAVIN\THIAMINE
  12. AMIODARONE [Concomitant]
     Active Substance: AMIODARONE
  13. INSULIN ASPART [Concomitant]
     Active Substance: INSULIN ASPART
  14. BUMETANIDE. [Concomitant]
     Active Substance: BUMETANIDE
  15. PANTOPRAZOLE [Concomitant]
     Active Substance: PANTOPRAZOLE SODIUM

REACTIONS (4)
  - Gastrointestinal haemorrhage [None]
  - Haemoglobin decreased [None]
  - Gastritis [None]
  - Polyp [None]

NARRATIVE: CASE EVENT DATE: 20151125
